FAERS Safety Report 7132066-2 (Version None)
Quarter: 2010Q4

REPORT INFORMATION
  Report Type: 
  Country: None (occurrence: None)
  Receive Date: 20101202
  Receipt Date: 20101124
  Transmission Date: 20110411
  Serious: Yes (Hospitalization)
  Sender: FDA-Public Use
  Company Number: AT-SANOFI-AVENTIS-2010SA071292

PATIENT
  Age: 72 Year
  Sex: Male

DRUGS (19)
  1. ELOXATIN [Suspect]
     Indication: GASTRIC CANCER
     Route: 041
     Dates: start: 20101118, end: 20101118
  2. IRINOTECAN HCL [Suspect]
     Indication: GASTRIC CANCER
     Route: 041
     Dates: start: 20101118, end: 20101118
  3. BEVACIZUMAB [Suspect]
     Indication: GASTRIC CANCER
     Route: 041
     Dates: start: 20101118, end: 20101118
  4. SELOKEN [Concomitant]
     Route: 048
  5. ASPIRIN [Concomitant]
     Route: 048
  6. LISINOPRIL [Concomitant]
     Route: 048
  7. SIMVASTATIN [Concomitant]
     Route: 048
  8. AMLODIPINE [Concomitant]
     Route: 048
  9. ISOSORBIDE MONONITRATE [Concomitant]
     Route: 048
  10. NITROLINGUAL [Concomitant]
     Dosage: 1-3 BOOSTS
     Route: 048
  11. NOVOMIX [Concomitant]
  12. NOVOMIX [Concomitant]
  13. MOTILIUM [Concomitant]
     Dates: start: 20101118
  14. PANTOPRAZOLE [Concomitant]
     Dates: start: 20101118
  15. BUSCOPAN [Concomitant]
     Dates: start: 20101118
  16. BUSCOPAN [Concomitant]
     Dates: start: 20101119
  17. FORTECORTIN [Concomitant]
     Dates: start: 20101117
  18. NAVOBAN [Concomitant]
     Dates: start: 20101119
  19. DALTEPARIN SODIUM [Concomitant]
     Dates: start: 20101117

REACTIONS (1)
  - ANGINA PECTORIS [None]
